FAERS Safety Report 8366544-5 (Version None)
Quarter: 2012Q2

REPORT INFORMATION
  Report Type: 
  Country: None (occurrence: None)
  Receive Date: 20120517
  Receipt Date: 20120509
  Transmission Date: 20120825
  Serious: Yes (Hospitalization)
  Sender: FDA-Public Use
  Company Number: BR-US-EMD SERONO, INC.-7131707

PATIENT
  Sex: Female

DRUGS (2)
  1. DORFLEX [Concomitant]
     Indication: HEADACHE
  2. REBIF [Suspect]
     Indication: RELAPSING-REMITTING MULTIPLE SCLEROSIS
     Dates: start: 20000101

REACTIONS (2)
  - HEADACHE [None]
  - PNEUMONIA [None]
